FAERS Safety Report 8545664-6 (Version None)
Quarter: 2012Q3

REPORT INFORMATION
  Report Type: 
  Country: None (occurrence: None)
  Receive Date: 20120727
  Receipt Date: 20110203
  Transmission Date: 20120928
  Serious: Yes (Other)
  Sender: FDA-Public Use
  Company Number: US-BAYER-201034805NA

PATIENT
  Age: 27 Year
  Sex: Female
  Weight: 68.182 kg

DRUGS (4)
  1. ALEVE [Concomitant]
  2. IBUPROFEN [Concomitant]
  3. YASMIN [Suspect]
     Indication: MENSTRUAL CYCLE MANAGEMENT
     Route: 048
     Dates: start: 20031101, end: 20080601
  4. YAZ [Suspect]
     Indication: PRODUCT USED FOR UNKNOWN INDICATION
     Route: 048
     Dates: start: 20031101, end: 20050501

REACTIONS (7)
  - DYSPEPSIA [None]
  - PAIN [None]
  - CHOLECYSTITIS CHRONIC [None]
  - GALLBLADDER CHOLESTEROLOSIS [None]
  - CHOLECYSTECTOMY [None]
  - PROCEDURAL PAIN [None]
  - CHOLELITHIASIS [None]
